FAERS Safety Report 7720940-5 (Version None)
Quarter: 2011Q3

REPORT INFORMATION
  Report Type: 
  Country: None (occurrence: None)
  Receive Date: 20110825
  Receipt Date: 20110804
  Transmission Date: 20111222
  Serious: Yes (Death)
  Sender: FDA-Public Use
  Company Number: 15967698

PATIENT
  Sex: Male

DRUGS (1)
  1. COUMADIN [Suspect]
     Dosage: 4 MILLIGRAM 1 DAY
     Dates: start: 20040101

REACTIONS (5)
  - LOCALISED INFECTION [None]
  - CARDIAC ARREST [None]
  - BRAIN DEATH [None]
  - INCORRECT DOSE ADMINISTERED [None]
  - UNRESPONSIVE TO STIMULI [None]
